FAERS Safety Report 5171481-3 (Version None)
Quarter: 2006Q4

REPORT INFORMATION
  Report Type: 
  Country: None (occurrence: None)
  Receive Date: 20061213
  Receipt Date: 20060425
  Transmission Date: 20070319
  Serious: Yes (Hospitalization)
  Sender: FDA-Public Use
  Company Number: US-AMGEN-STX178018

PATIENT
  Age: 60 Year
  Sex: Female
  Weight: 109.4 kg

DRUGS (1)
  1. ENBREL [Suspect]
     Indication: RHEUMATOID ARTHRITIS
     Route: 058
     Dates: start: 20050912

REACTIONS (2)
  - SEPSIS [None]
  - URINARY TRACT INFECTION [None]
